FAERS Safety Report 13428409 (Version 3)
Quarter: 2018Q2

REPORT INFORMATION
  Report Type: Spontaneous
  Country: US (occurrence: US)
  Receive Date: 20170411
  Receipt Date: 20180627
  Transmission Date: 20180711
  Serious: Yes (Hospitalization, Other)
  Sender: FDA-Public Use
  Company Number: US-PFIZER INC-2017151617

PATIENT
  Age: 19 Year
  Sex: Male

DRUGS (1)
  1. GABAPENTIN. [Suspect]
     Active Substance: GABAPENTIN
     Dosage: 6000 MG, UNK (TWENTY 300 MG TABLETS)
     Route: 048

REACTIONS (10)
  - Paranoia [Recovered/Resolved]
  - Condition aggravated [Recovered/Resolved]
  - Overdose [Unknown]
  - Hallucination [Recovered/Resolved]
  - Rhabdomyolysis [Unknown]
  - Delirium [Recovered/Resolved]
  - Tachyphrenia [Recovered/Resolved]
  - Agitation [Recovered/Resolved]
  - Heart rate increased [Unknown]
  - Blood pressure increased [Unknown]
